FAERS Safety Report 4818955-X (Version None)
Quarter: 2005Q4

REPORT INFORMATION
  Report Type: 
  Country: None (occurrence: None)
  Receive Date: 20051101
  Receipt Date: 20051019
  Transmission Date: 20060501
  Serious: Yes (Other)
  Sender: FDA-Public Use
  Company Number: 2005145793

PATIENT
  Age: 80 Year
  Sex: Female

DRUGS (4)
  1. SULPERAZON (SULBACTAM, CEFOPERAZONE) [Suspect]
     Indication: ILL-DEFINED DISORDER
     Dosage: INTRAVENOUS
     Route: 042
  2. SOLU-MEDROL [Concomitant]
  3. FLAVERIC (BENPROPERINE PHOSPHATE) [Concomitant]
  4. THEO-DUR [Concomitant]

REACTIONS (1)
  - CONVULSION [None]
